FAERS Safety Report 23756106 (Version 1)
Quarter: 2024Q2

REPORT INFORMATION
  Report Type: Spontaneous
  Country: US (occurrence: None)
  Receive Date: 20240418
  Receipt Date: 20240418
  Transmission Date: 20240715
  Serious: No
  Sender: FDA-Public Use
  Company Number: None

PATIENT
  Age: 70 Year
  Sex: Male

DRUGS (1)
  1. PACLITAXEL [Suspect]
     Active Substance: PACLITAXEL
     Indication: Squamous cell carcinoma
     Dosage: 96 MG ONCE IV
     Route: 042
     Dates: start: 20231019, end: 20231024

REACTIONS (8)
  - Anxiety [None]
  - Chest pain [None]
  - Cough [None]
  - Hyperhidrosis [None]
  - Tachycardia [None]
  - Wheezing [None]
  - Blood pressure increased [None]
  - Infusion related reaction [None]

NARRATIVE: CASE EVENT DATE: 20231019
